FAERS Safety Report 13188259 (Version 1)
Quarter: 2017Q1

REPORT INFORMATION
  Report Type: Spontaneous
  Country: US (occurrence: US)
  Receive Date: 20170206
  Receipt Date: 20170206
  Transmission Date: 20170428
  Serious: No
  Sender: FDA-Public Use
  Company Number: US-ELI_LILLY_AND_COMPANY-US201702000141

PATIENT
  Sex: Female

DRUGS (2)
  1. EVISTA [Suspect]
     Active Substance: RALOXIFENE HYDROCHLORIDE
     Indication: OSTEOPOROSIS
     Dosage: UNK
     Route: 065
     Dates: start: 20170114
  2. LIDOCAINE. [Interacting]
     Active Substance: LIDOCAINE
     Indication: ENDODONTIC PROCEDURE
     Dosage: UNK
     Route: 065

REACTIONS (2)
  - Muscle twitching [Unknown]
  - Drug interaction [Unknown]
